FAERS Safety Report 23762532 (Version 2)
Quarter: 2024Q3

REPORT INFORMATION
  Report Type: Spontaneous
  Country: JP (occurrence: JP)
  Receive Date: 20240419
  Receipt Date: 20240913
  Transmission Date: 20241016
  Serious: Yes (Hospitalization)
  Sender: EISAI
  Company Number: JP-Eisai-EC-2024-163876

PATIENT
  Sex: Male

DRUGS (6)
  1. LENVIMA [Suspect]
     Active Substance: LENVATINIB
     Indication: Renal cell carcinoma
     Route: 048
     Dates: start: 20230627, end: 20230907
  2. LENVIMA [Suspect]
     Active Substance: LENVATINIB
     Route: 048
     Dates: start: 20231019, end: 202403
  3. LENVIMA [Suspect]
     Active Substance: LENVATINIB
     Route: 048
     Dates: start: 20240604, end: 20240902
  4. KEYTRUDA [Suspect]
     Active Substance: PEMBROLIZUMAB
     Indication: Renal cell carcinoma
     Route: 042
     Dates: start: 20230627, end: 20230907
  5. KEYTRUDA [Suspect]
     Active Substance: PEMBROLIZUMAB
     Route: 042
     Dates: start: 20231019, end: 202403
  6. KEYTRUDA [Suspect]
     Active Substance: PEMBROLIZUMAB
     Route: 042
     Dates: start: 20240604, end: 20240820

REACTIONS (1)
  - Immune-mediated hepatitis [Recovered/Resolved]

NARRATIVE: CASE EVENT DATE: 20240301
